FAERS Safety Report 8830321 (Version 1)
Quarter: 2012Q4

REPORT INFORMATION
  Report Type: 
  Country: US (occurrence: US)
  Receive Date: 20121009
  Receipt Date: 20121009
  Transmission Date: 20130627
  Serious: Yes (Hospitalization, Other)
  Sender: FDA-Public Use
  Company Number: US-PFIZER INC-2012249179

PATIENT
  Age: 69 Year
  Sex: Male
  Weight: 81.63 kg

DRUGS (11)
  1. LYRICA [Suspect]
     Indication: NERVE INJURY
     Dosage: 150 mg, daily
     Dates: start: 2010, end: 2012
  2. LYRICA [Suspect]
     Indication: BURNING SENSATION
     Dosage: UNK
     Dates: start: 2012, end: 2012
  3. LYRICA [Suspect]
     Indication: SCLERODERMA
  4. GLIPIZIDE [Concomitant]
     Indication: DIABETES MELLITUS
     Dosage: 10 mg, daily
  5. JANUVIA [Concomitant]
     Indication: DIABETES MELLITUS
     Dosage: 50 mg, daily
  6. ENALAPRIL [Concomitant]
     Dosage: 5 mg, daily
  7. TRILIPIX [Concomitant]
     Dosage: 135 mg, daily
  8. CILOSTAZOL [Concomitant]
     Dosage: 100 mg, 2x/day
  9. OMEPRAZOLE [Concomitant]
     Dosage: 40 mg, daily
  10. PRAVASTATIN [Concomitant]
     Dosage: 80 mg, daily
  11. ASPIRIN [Concomitant]
     Dosage: 162 mg, daily

REACTIONS (10)
  - Urinary tract infection [Unknown]
  - Ear infection [Unknown]
  - Lip swelling [Recovering/Resolving]
  - Insomnia [Not Recovered/Not Resolved]
  - Abdominal distension [Recovering/Resolving]
  - Asthenia [Recovering/Resolving]
  - Pyrexia [Recovering/Resolving]
  - Eructation [Recovering/Resolving]
  - Flatulence [Recovering/Resolving]
  - Malaise [Recovering/Resolving]
